FAERS Safety Report 11362631 (Version 1)
Quarter: 2015Q3

REPORT INFORMATION
  Report Type: Spontaneous
  Country: US (occurrence: US)
  Receive Date: 20150810
  Receipt Date: 20150810
  Transmission Date: 20151125
  Serious: No
  Sender: FDA-Public Use
  Company Number: US-MERZ NORTH AMERICA, INC.-15MRZ-00415

PATIENT
  Sex: Female

DRUGS (2)
  1. XEOMIN [Suspect]
     Active Substance: INCOBOTULINUMTOXINA
     Indication: SKIN COSMETIC PROCEDURE
     Dates: start: 20150201, end: 20150201
  2. XEOMIN [Suspect]
     Active Substance: INCOBOTULINUMTOXINA
     Dates: start: 20150805, end: 20150805

REACTIONS (8)
  - Eye pain [Unknown]
  - Abnormal sensation in eye [Unknown]
  - Eyelid dermatochalasis [Unknown]
  - Eye pruritus [Unknown]
  - Sensation of foreign body [Unknown]
  - Eye irritation [Unknown]
  - Ocular discomfort [Unknown]
  - Eye disorder [Unknown]

NARRATIVE: CASE EVENT DATE: 20150201
